FAERS Safety Report 12255653 (Version 1)
Quarter: 2016Q2

REPORT INFORMATION
  Report Type: Spontaneous
  Country: US (occurrence: None)
  Receive Date: 20160411
  Receipt Date: 20160411
  Transmission Date: 20160815
  Serious: No
  Sender: FDA-Public Use
  Company Number: None

PATIENT
  Age: 52 Year
  Sex: Female
  Weight: 86.18 kg

DRUGS (3)
  1. CREST 3D WHITE BRILLIANCE DAILY CLEANSING AND WHITENING SYSTEM [Suspect]
     Active Substance: STANNOUS FLUORIDE
     Indication: DENTAL DISORDER PROPHYLAXIS
     Dosage: 1 OUNCE(S) EVERY 4 HOURS BRUSHING TEETH
     Route: 004
     Dates: start: 20160408, end: 20160409
  2. BIOTIN [Concomitant]
     Active Substance: BIOTIN
  3. BLACK COHOSH [Concomitant]
     Active Substance: BLACK COHOSH

REACTIONS (6)
  - Glossodynia [None]
  - Oropharyngeal pain [None]
  - Throat irritation [None]
  - Tongue discolouration [None]
  - Swollen tongue [None]
  - Hypersensitivity [None]

NARRATIVE: CASE EVENT DATE: 20160408
